FAERS Safety Report 15814274 (Version 1)
Quarter: 2019Q1

REPORT INFORMATION
  Report Type: Spontaneous
  Country: GB (occurrence: GB)
  Receive Date: 20190111
  Receipt Date: 20190111
  Transmission Date: 20190417
  Serious: Yes (Disabling)
  Sender: FDA-Public Use
  Company Number: GB-009507513-1901GBR003934

PATIENT
  Age: 73 Year
  Sex: Female
  Weight: 65 kg

DRUGS (7)
  1. TIMOLOL. [Concomitant]
     Active Substance: TIMOLOL
     Dosage: UNK
     Dates: start: 20180316
  2. FLUOROURACIL. [Concomitant]
     Active Substance: FLUOROURACIL
     Dosage: UNK
     Dates: start: 20181221
  3. FENBID [Concomitant]
     Active Substance: IBUPROFEN
     Dosage: UNK
     Dates: start: 20180629
  4. BRIMONIDINE TARTRATE. [Concomitant]
     Active Substance: BRIMONIDINE TARTRATE
     Dosage: UNK
     Dates: start: 20180316
  5. ATORVASTATIN [Concomitant]
     Active Substance: ATORVASTATIN
     Dosage: UNK
     Dates: start: 20180316
  6. DORZOLAMIDE HYDROCHLORIDE. [Suspect]
     Active Substance: DORZOLAMIDE HYDROCHLORIDE
     Dosage: 20 MG/ML
     Route: 047
     Dates: start: 20181221
  7. HYDROCORTISONE. [Concomitant]
     Active Substance: HYDROCORTISONE
     Dosage: UNK
     Dates: start: 20181221

REACTIONS (3)
  - Swelling of eyelid [Unknown]
  - Swelling face [Recovering/Resolving]
  - Erythema of eyelid [Unknown]

NARRATIVE: CASE EVENT DATE: 20181221
